FAERS Safety Report 16176870 (Version 1)
Quarter: 2019Q2

REPORT INFORMATION
  Report Type: Spontaneous
  Country: US (occurrence: US)
  Receive Date: 20190409
  Receipt Date: 20190409
  Transmission Date: 20190711
  Serious: Yes (Death)
  Sender: FDA-Public Use
  Company Number: US-HAEMONETICS CORP-2065604

PATIENT
  Age: 50 Year
  Sex: Female
  Weight: 58.64 kg

DRUGS (1)
  1. HAEMONETICS ANTICOAGULANT SODIUM CITRATE [Suspect]
     Active Substance: TRISODIUM CITRATE DIHYDRATE
     Indication: ANTICOAGULANT THERAPY
     Route: 042
     Dates: start: 20190130, end: 20190130

REACTIONS (2)
  - Death [Fatal]
  - Procedural complication [None]

NARRATIVE: CASE EVENT DATE: 20190130
